FAERS Safety Report 7965552-3 (Version None)
Quarter: 2011Q4

REPORT INFORMATION
  Report Type: 
  Country: None (occurrence: None)
  Receive Date: 20111206
  Receipt Date: 20111123
  Transmission Date: 20120403
  Serious: Yes (Other)
  Sender: FDA-Public Use
  Company Number: 2007EU002029

PATIENT
  Age: 22 Year
  Sex: Male
  Weight: 54 kg

DRUGS (7)
  1. CORTICOSTEROID NOS (CORTICOSTEROID NOS) [Suspect]
     Indication: LIVER TRANSPLANT
     Dosage: , /D,
     Dates: start: 20021101
  2. CORTICOSTEROID NOS (CORTICOSTEROID NOS) [Suspect]
     Indication: LUNG TRANSPLANT
     Dosage: , /D,
     Dates: start: 20021101
  3. TACROLIMUS [Suspect]
     Indication: LIVER TRANSPLANT
     Dosage: , /D,; 5.5 MG, BID,
     Dates: start: 20021101
  4. TACROLIMUS [Suspect]
     Indication: LUNG TRANSPLANT
     Dosage: , /D,; 5.5 MG, BID,
     Dates: start: 20021101
  5. BASILIXIMAB (BASILIXIMAB) [Suspect]
     Indication: LUNG TRANSPLANT
     Dosage: , /D,
     Dates: start: 20021101
  6. BASILIXIMAB (BASILIXIMAB) [Suspect]
     Indication: LIVER TRANSPLANT
     Dosage: , /D,
     Dates: start: 20021101
  7. PIPERACILLIN [Suspect]
     Indication: ANTIBIOTIC PROPHYLAXIS
     Dosage: , /D,

REACTIONS (5)
  - OFF LABEL USE [None]
  - ENTEROBACTER PNEUMONIA [None]
  - IMMUNOSUPPRESSANT DRUG LEVEL INCREASED [None]
  - RENAL FAILURE ACUTE [None]
  - FLUID OVERLOAD [None]
